FAERS Safety Report 11938505 (Version 3)
Quarter: 2016Q1

REPORT INFORMATION
  Report Type: Spontaneous
  Country: US (occurrence: US)
  Receive Date: 20160122
  Receipt Date: 20160308
  Transmission Date: 20160526
  Serious: Yes (Hospitalization, Other)
  Sender: FDA-Public Use
  Company Number: US-PFIZER INC-2016029900

PATIENT
  Age: 37 Year
  Sex: Female
  Weight: 54 kg

DRUGS (10)
  1. DILANTIN [Suspect]
     Active Substance: PHENYTOIN
     Dosage: 200 MG ON ON TUESDAY
  2. DILANTIN [Suspect]
     Active Substance: PHENYTOIN
     Dosage: 300 MG, DAILY  (A DAY)
  3. DILANTIN [Suspect]
     Active Substance: PHENYTOIN
     Dosage: TAKING 30MG DOSE ON THURSDAY AND SATURDAY
  4. FLEXERIL [Concomitant]
     Active Substance: CYCLOBENZAPRINE HYDROCHLORIDE
     Indication: MUSCULOSKELETAL STIFFNESS
     Dosage: 10MG, 1 TABLET EVERY 12 HOURS AS NEEDED
     Route: 048
  5. DILANTIN [Suspect]
     Active Substance: PHENYTOIN
     Dosage: 230 MG, 2X/DAY [(SAT) 1AM 1PM]
  6. FLEXERIL [Concomitant]
     Active Substance: CYCLOBENZAPRINE HYDROCHLORIDE
     Indication: SEIZURE
  7. DILANTIN [Suspect]
     Active Substance: PHENYTOIN
     Indication: EPILEPSY
     Dosage: 100 MG AT 7 AM AND 7 PM AND ADDITIONAL 30 MG (TUESDAY, THURSDAY, AND SATURDAY)
  8. DILANTIN [Suspect]
     Active Substance: PHENYTOIN
     Indication: SEIZURE
     Dosage: 100 MG CAPSULE AT 7 AM AND 200 MG AT 7 PM ON SUNDAY (SU), MONDAY (M), WEDNESDAY (W), AND FRIDAY (F)
     Route: 048
  9. DILANTIN [Suspect]
     Active Substance: PHENYTOIN
     Dosage: 200 MG, 2X/DAY [(TUESDAY) 1AM 1PM]
  10. DILANTIN [Suspect]
     Active Substance: PHENYTOIN
     Dosage: 230 MG, 2X/DAY [(THURSDAY ) 1AM 1PM]

REACTIONS (14)
  - Seizure [Not Recovered/Not Resolved]
  - Disease progression [Not Recovered/Not Resolved]
  - Lower limb fracture [Not Recovered/Not Resolved]
  - Nerve compression [Not Recovered/Not Resolved]
  - Intervertebral disc protrusion [Not Recovered/Not Resolved]
  - Generalised tonic-clonic seizure [Not Recovered/Not Resolved]
  - Amnesia [Not Recovered/Not Resolved]
  - Osteoporosis [Not Recovered/Not Resolved]
  - Anticonvulsant drug level increased [Not Recovered/Not Resolved]
  - Anticonvulsant drug level decreased [Not Recovered/Not Resolved]
  - Fall [Not Recovered/Not Resolved]
  - Abdominal pain upper [Unknown]
  - Epilepsy [Not Recovered/Not Resolved]
  - Muscle tightness [Not Recovered/Not Resolved]

NARRATIVE: CASE EVENT DATE: 1991
